FAERS Safety Report 6431298-6 (Version None)
Quarter: 2009Q4

REPORT INFORMATION
  Report Type: 
  Country: None (occurrence: None)
  Receive Date: 20091106
  Receipt Date: 20091026
  Transmission Date: 20100525
  Serious: Yes (Hospitalization)
  Sender: FDA-Public Use
  Company Number: FR-ELI_LILLY_AND_COMPANY-FR200904000452

PATIENT
  Age: 86 Year
  Sex: Female
  Weight: 46 kg

DRUGS (2)
  1. FORTEO [Suspect]
     Indication: OSTEOPOROSIS
     Dosage: 20 UG, DAILY (1/D)
     Route: 058
     Dates: start: 20080312
  2. PREVISCAN [Concomitant]
     Indication: ARTERIAL DISORDER
     Dosage: UNK, UNKNOWN
     Route: 065

REACTIONS (1)
  - ARTERIAL THROMBOSIS LIMB [None]
